FAERS Safety Report 7641421-3 (Version None)
Quarter: 2011Q3

REPORT INFORMATION
  Report Type: 
  Country: None (occurrence: None)
  Receive Date: 20110728
  Receipt Date: 20110722
  Transmission Date: 20111222
  Serious: Yes (Other)
  Sender: FDA-Public Use
  Company Number: GB-PFIZER INC-2011168158

PATIENT
  Age: 92 Year
  Sex: Female
  Weight: 59.2 kg

DRUGS (9)
  1. DOXAZOSIN MESYLATE [Suspect]
     Indication: HYPERTENSION
     Dosage: UNK
     Route: 048
     Dates: start: 20110709, end: 20110714
  2. ACETYLSALICYLIC ACID [Concomitant]
  3. ALENDRONIC ACID [Concomitant]
  4. QUININE SULFATE [Concomitant]
  5. FUROSEMIDE [Concomitant]
  6. ANASTROZOLE [Concomitant]
  7. ATORVASTATIN [Concomitant]
  8. LANSOPRAZOLE [Concomitant]
  9. AMLODIPINE [Concomitant]
     Dosage: UNK
     Dates: end: 20110101

REACTIONS (4)
  - THROMBOCYTOPENIA [None]
  - LYMPHOPENIA [None]
  - NEUTROPENIA [None]
  - LEUKOPENIA [None]
